FAERS Safety Report 6236364-6 (Version None)
Quarter: 2009Q2

REPORT INFORMATION
  Report Type: 
  Country: None (occurrence: None)
  Receive Date: 20090619
  Receipt Date: 20090609
  Transmission Date: 20091009
  Serious: Yes (Death, Hospitalization, Other)
  Sender: FDA-Public Use
  Company Number: US-JNJFOC-20090604942

PATIENT
  Sex: Female

DRUGS (41)
  1. DOXIL [Suspect]
     Dosage: CYCLE 4 - 40MG/M2 INFUSED OVER 24 HOURS. DAYS 1-4
     Route: 042
  2. DOXIL [Suspect]
     Dosage: CYCLE 3
     Route: 042
  3. DOXIL [Suspect]
     Dosage: CYCLE 2
     Route: 042
  4. DOXIL [Suspect]
     Indication: MULTIPLE MYELOMA
     Dosage: CYCLE 1
     Route: 042
  5. THALIDOMIDE [Suspect]
     Dosage: 50-100 MG DAILY
     Route: 048
  6. THALIDOMIDE [Suspect]
     Dosage: FOR 28 DAYS AT NIGHT
     Route: 048
  7. THALIDOMIDE [Suspect]
     Indication: MULTIPLE MYELOMA
     Route: 048
  8. REVLIMID [Suspect]
     Dosage: DAILY FOR 21 DAYS. STOPPED IN 2007.
     Route: 048
  9. REVLIMID [Suspect]
     Indication: MULTIPLE MYELOMA
     Dosage: FOR 21 DAYS
     Route: 048
  10. DEXAMETHASONE [Suspect]
     Route: 048
  11. DEXAMETHASONE [Suspect]
     Indication: MULTIPLE MYELOMA
     Route: 048
  12. CYCLOPHOSPHAMIDE [Suspect]
     Route: 042
  13. CYCLOPHOSPHAMIDE [Suspect]
     Indication: MULTIPLE MYELOMA
     Route: 042
  14. ETOPOSIDE [Suspect]
     Indication: MULTIPLE MYELOMA
     Route: 042
  15. CISPLATIN [Suspect]
     Indication: MULTIPLE MYELOMA
     Route: 042
  16. VELCADE [Suspect]
     Dosage: 2 CYCLES
     Route: 065
  17. VELCADE [Suspect]
     Indication: MULTIPLE MYELOMA
     Dosage: STOPPED IN 2008
     Route: 065
  18. PERIFOSINE [Concomitant]
     Indication: MULTIPLE MYELOMA
     Route: 065
  19. METHOTREXATE [Concomitant]
     Indication: MULTIPLE MYELOMA
     Route: 042
  20. SODIUM CHLORIDE [Concomitant]
     Indication: FLUID REPLACEMENT
     Route: 065
  21. CYTARABINE [Concomitant]
     Indication: MULTIPLE MYELOMA
     Route: 042
  22. ASPIRIN [Concomitant]
     Indication: ANTICOAGULANT THERAPY
     Route: 065
  23. PROCHLORPERAZINE [Concomitant]
     Route: 065
  24. MORPHINE [Concomitant]
     Route: 065
  25. FLUCONAZOLE [Concomitant]
     Route: 048
  26. ACYCLOVIR [Concomitant]
     Route: 048
  27. ZOFRAN [Concomitant]
     Route: 048
  28. SENNA [Concomitant]
     Route: 048
  29. COLACE [Concomitant]
     Route: 048
  30. HYDROCODONE BITARTRATE [Concomitant]
     Route: 065
  31. MOXIFLOXACIN HCL [Concomitant]
     Route: 065
  32. BACTRIM [Concomitant]
     Route: 048
  33. ESOMEPRAZOLE MAGNESIUM [Concomitant]
     Route: 065
  34. LISINOPRIL [Concomitant]
     Route: 048
  35. COMPAZINE [Concomitant]
     Dosage: EVERY 6 HOURS
     Route: 048
  36. VICODIN [Concomitant]
     Indication: PAIN
     Route: 048
  37. LEUCOVORINE [Concomitant]
     Route: 042
  38. ORAL MORPHINE SUSTAINED RELEASE [Concomitant]
     Route: 065
  39. ATIVAN [Concomitant]
     Route: 065
  40. NEULASTA [Concomitant]
     Route: 065
  41. MAXIDEX [Concomitant]
     Route: 047

REACTIONS (6)
  - BRADYCARDIA [None]
  - CARDIAC TAMPONADE [None]
  - LEUKOPENIA [None]
  - MULTIPLE MYELOMA [None]
  - PANCYTOPENIA [None]
  - RESPIRATORY FAILURE [None]
